FAERS Safety Report 6756939-5 (Version None)
Quarter: 2010Q2

REPORT INFORMATION
  Report Type: 
  Country: None (occurrence: None)
  Receive Date: 20100604
  Receipt Date: 20100524
  Transmission Date: 20101027
  Serious: Yes (Other)
  Sender: FDA-Public Use
  Company Number: MY-WATSON-2010-07224

PATIENT

DRUGS (4)
  1. LORAZEPAM [Suspect]
     Indication: BIPOLAR DISORDER
     Dosage: 1 MG BID
     Route: 048
  2. TRIHEXYPHENIDYL HYDROCHLORIDE [Suspect]
     Indication: BIPOLAR DISORDER
     Dosage: 4 MG TID
     Route: 048
  3. LITHIUM [Suspect]
     Indication: BIPOLAR DISORDER
     Dosage: 600MG QPM, 300 MG QAM
     Route: 048
  4. CLOMAZEPINE [Suspect]
     Indication: BIPOLAR DISORDER
     Dosage: 10 MG DAILY
     Route: 048

REACTIONS (2)
  - CENTRAL NERVOUS SYSTEM LESION [None]
  - NEUROLEPTIC MALIGNANT SYNDROME [None]
